FAERS Safety Report 8119978 (Version 2)
Quarter: 2013Q1

REPORT INFORMATION
  Report Type: Spontaneous
  Country: US (occurrence: US)
  Receive Date: 20110905
  Receipt Date: 20130221
  Transmission Date: 20140127
  Serious: No
  Sender: FDA-Public Use
  Company Number: US-BIOGENIDEC-2011BI033112

PATIENT
  Sex: Female

DRUGS (3)
  1. TYSABRI [Suspect]
     Indication: MULTIPLE SCLEROSIS
     Route: 042
     Dates: start: 20061219
  2. AVONEX [Concomitant]
     Indication: MULTIPLE SCLEROSIS
     Route: 030
  3. LAMICTAL [Concomitant]
     Indication: CONVULSION

REACTIONS (3)
  - Influenza like illness [Recovered/Resolved]
  - Gastric ulcer [Recovered/Resolved with Sequelae]
  - Paraesthesia [Recovered/Resolved with Sequelae]
